FAERS Safety Report 9063653 (Version 1)
Quarter: 2013Q1

REPORT INFORMATION
  Report Type: Report from Study
  Country: US (occurrence: US)
  Receive Date: 20130129
  Receipt Date: 20130129
  Transmission Date: 20140127
  Serious: No
  Sender: FDA-Public Use
  Company Number: US-ABBOTT-12P-163-0947280-00

PATIENT
  Sex: Male

DRUGS (9)
  1. HUMIRA 40 MG/0.8 ML PEN [Suspect]
     Indication: PSORIATIC ARTHROPATHY
  2. GABAPENTIN [Concomitant]
     Indication: CONVULSION
  3. NEXIUM [Concomitant]
     Indication: GASTROOESOPHAGEAL REFLUX DISEASE
     Dosage: 40MG DAILY
  4. CLONAZEPAM [Concomitant]
     Indication: PAIN
     Dosage: 1-2 DAILY AS NEEDED
  5. CLONAZEPAM [Concomitant]
     Indication: ANXIETY
  6. OXYCODONE [Concomitant]
     Indication: PAIN
     Dosage: ONCE EVERY 6 HOURS AS REQUIRED
  7. CARDIAZEM [Concomitant]
     Indication: HEART RATE IRREGULAR
     Dosage: 120MG DAILY
  8. NITROSTAT [Concomitant]
     Indication: PRODUCT USED FOR UNKNOWN INDICATION
     Route: 060
  9. ISOROBIDE [Concomitant]
     Indication: CARDIOVASCULAR EVENT PROPHYLAXIS
     Dosage: IN THE EARLY AM

REACTIONS (2)
  - Contusion [Not Recovered/Not Resolved]
  - Local swelling [Not Recovered/Not Resolved]
